FAERS Safety Report 7067630-2 (Version None)
Quarter: 2010Q4

REPORT INFORMATION
  Report Type: 
  Country: None (occurrence: None)
  Receive Date: 20101028
  Receipt Date: 20101019
  Transmission Date: 20110411
  Serious: Yes (Life-Threatening, Hospitalization)
  Sender: FDA-Public Use
  Company Number: FR-NOVOPROD-315842

PATIENT
  Age: 57 Year
  Sex: Female

DRUGS (5)
  1. NOVONORM [Suspect]
     Indication: TYPE 2 DIABETES MELLITUS
     Dosage: 6 MG, QD
     Route: 058
     Dates: end: 20100606
  2. METFORMIN [Suspect]
     Dosage: 300 MG, UNK
     Route: 048
     Dates: end: 20100605
  3. LEVOTHYROXINE SODIUM [Concomitant]
  4. INSULATARD [Concomitant]
  5. BISOPROLOL [Concomitant]

REACTIONS (6)
  - DEHYDRATION [None]
  - DIARRHOEA [None]
  - LACTIC ACIDOSIS [None]
  - PANCREATIC ENZYMES INCREASED [None]
  - RENAL FAILURE ACUTE [None]
  - VOMITING [None]
